FAERS Safety Report 8132485-1 (Version None)
Quarter: 2012Q1

REPORT INFORMATION
  Report Type: 
  Country: None (occurrence: None)
  Receive Date: 20120208
  Receipt Date: 20120123
  Transmission Date: 20120608
  Serious: Yes (Hospitalization, Disabling)
  Sender: FDA-Public Use
  Company Number: 2011-2459

PATIENT
  Age: 35 Year
  Sex: Female

DRUGS (2)
  1. BOTULINUM TOXIN TYPE A [Suspect]
     Indication: SKIN WRINKLING
     Dosage: 65 UNITS (65 UNITS, SINGLE CYCLE), INTRAMUSCULAR
     Route: 030
     Dates: start: 20101215, end: 20101215
  2. BOTULINUM TOXIN TYPE A [Suspect]
     Indication: OFF LABEL USE
     Dosage: 65 UNITS (65 UNITS, SINGLE CYCLE), INTRAMUSCULAR
     Route: 030
     Dates: start: 20101215, end: 20101215

REACTIONS (4)
  - IMPAIRED HEALING [None]
  - HAEMATOMA [None]
  - ENCEPHALITIS [None]
  - OCULAR HYPERAEMIA [None]
